FAERS Safety Report 8822947 (Version 2)
Quarter: 2012Q4

REPORT INFORMATION
  Report Type: 
  Country: MX (occurrence: MX)
  Receive Date: 20121003
  Receipt Date: 20121102
  Transmission Date: 20130627
  Serious: Yes (Death, Hospitalization, Other)
  Sender: FDA-Public Use
  Company Number: PHHY2012MX085098

PATIENT
  Age: 60 Year
  Sex: Female

DRUGS (3)
  1. ONBREZ [Suspect]
     Indication: CHRONIC OBSTRUCTIVE PULMONARY DISEASE
     Dosage: 150 ug, daily
     Dates: start: 20120313, end: 20120927
  2. INSULIN [Concomitant]
     Dosage: dose of  30-0-20
  3. CAPTOPRIL [Concomitant]

REACTIONS (9)
  - Respiratory arrest [Fatal]
  - Skin ulcer [Unknown]
  - Skin burning sensation [Unknown]
  - Pruritus [Unknown]
  - Gait disturbance [Unknown]
  - Renal failure chronic [Unknown]
  - Blood pressure fluctuation [Unknown]
  - Cold sweat [Unknown]
  - Asthenia [Unknown]
